FAERS Safety Report 12755036 (Version 1)
Quarter: 2016Q3

REPORT INFORMATION
  Report Type: Spontaneous
  Country: BR (occurrence: BR)
  Receive Date: 20160916
  Receipt Date: 20160916
  Transmission Date: 20161109
  Serious: Yes (Other)
  Sender: FDA-Public Use
  Company Number: BR-GALDERMA-BR16005799

PATIENT
  Sex: Female
  Weight: 70 kg

DRUGS (2)
  1. UNSPECIFIED CONTRACEPTIVE DRUG [Concomitant]
     Indication: CONTRACEPTION
  2. PLIAGLIS [Suspect]
     Active Substance: LIDOCAINE\TETRACAINE
     Indication: PRODUCT USED FOR UNKNOWN INDICATION
     Route: 003

REACTIONS (7)
  - Angioedema [Recovered/Resolved]
  - Face oedema [Recovered/Resolved]
  - Eyelid oedema [Recovered/Resolved]
  - Pruritus [Recovered/Resolved]
  - Rash [Recovered/Resolved]
  - Erythema [Recovered/Resolved]
  - Urticaria [Recovered/Resolved]
